FAERS Safety Report 7393838-2 (Version None)
Quarter: 2011Q2

REPORT INFORMATION
  Report Type: 
  Country: None (occurrence: None)
  Receive Date: 20110405
  Receipt Date: 20110329
  Transmission Date: 20111010
  Serious: Yes (Hospitalization, Other)
  Sender: FDA-Public Use
  Company Number: DE-SANOFI-AVENTIS-2011SA014868

PATIENT
  Age: 47 Year
  Sex: Female
  Weight: 77 kg

DRUGS (10)
  1. EPROSARTAN [Concomitant]
  2. PANTOZOL [Concomitant]
  3. NOVALGIN [Concomitant]
  4. SIRDALUD [Concomitant]
  5. AMITRIPTYLINE [Concomitant]
  6. ATMADISC [Concomitant]
  7. SALBUTAMOL [Concomitant]
  8. RESTEX [Concomitant]
  9. QUENSYL [Suspect]
     Route: 048
     Dates: start: 20110104, end: 20110118
  10. QUENSYL [Suspect]
     Route: 048
     Dates: start: 20110104, end: 20110118

REACTIONS (4)
  - FATIGUE [None]
  - HEPATIC NECROSIS [None]
  - TRANSAMINASES INCREASED [None]
  - AUTOIMMUNE HEPATITIS [None]
